FAERS Safety Report 17277947 (Version 1)
Quarter: 2020Q1

REPORT INFORMATION
  Report Type: Spontaneous
  Country: US (occurrence: US)
  Receive Date: 20200116
  Receipt Date: 20200116
  Transmission Date: 20200409
  Serious: Yes (Other)
  Sender: FDA-Public Use
  Company Number: US-PFIZER INC-2020018415

PATIENT
  Age: 53 Year
  Sex: Female
  Weight: 72.57 kg

DRUGS (2)
  1. EFFEXOR XR [Suspect]
     Active Substance: VENLAFAXINE HYDROCHLORIDE
     Indication: DEPRESSION
     Dosage: 37.5 MG, 1X/DAY (1 CAPSULE AT 5 O^CLOCK IN THE AFTERNOON BY MOUTH)
     Route: 048
     Dates: start: 2019, end: 2019
  2. REMERON [Concomitant]
     Active Substance: MIRTAZAPINE
     Indication: SLEEP DISORDER
     Dosage: 7.5 MG, UNK
     Dates: start: 201902

REACTIONS (4)
  - Laboratory test abnormal [Unknown]
  - Vaginal prolapse [Not Recovered/Not Resolved]
  - Palpitations [Recovered/Resolved]
  - Bladder prolapse [Not Recovered/Not Resolved]

NARRATIVE: CASE EVENT DATE: 2019
